FAERS Safety Report 4417640-6 (Version None)
Quarter: 2004Q3

REPORT INFORMATION
  Report Type: 
  Country: None (occurrence: None)
  Receive Date: 20040803
  Receipt Date: 20040726
  Transmission Date: 20050211
  Serious: Yes (Hospitalization)
  Sender: FDA-Public Use
  Company Number: 2002088255PL

PATIENT
  Age: 65 Year
  Sex: Female
  Weight: 72 kg

DRUGS (7)
  1. TAMOXIFEN CITRATE [Suspect]
     Indication: BREAST CANCER
     Dosage: 20 MG, QD, ORAL
     Route: 048
     Dates: start: 19991210
  2. ASPIRIN [Concomitant]
  3. LOWASTEROL [Concomitant]
  4. METOCARD [Concomitant]
  5. CILAZAPRIL [Concomitant]
  6. PENTOXIFYLLINE [Concomitant]
  7. DICLOFENAC [Concomitant]

REACTIONS (3)
  - BONE PAIN [None]
  - ENDOMETRIAL ATROPHY [None]
  - METRORRHAGIA [None]
